FAERS Safety Report 7234841-2 (Version None)
Quarter: 2011Q1

REPORT INFORMATION
  Report Type: 
  Country: None (occurrence: None)
  Receive Date: 20110114
  Receipt Date: 20110114
  Transmission Date: 20110831
  Serious: Yes (Other)
  Sender: FDA-Public Use
  Company Number: None

PATIENT
  Sex: Male
  Weight: 68.0396 kg

DRUGS (1)
  1. VIVITROL [Suspect]
     Indication: ALCOHOLISM
     Dosage: 380MG ONCE A MONTH IM
     Route: 030
     Dates: start: 20101208, end: 20110106

REACTIONS (2)
  - VISION BLURRED [None]
  - RETINAL DETACHMENT [None]
